FAERS Safety Report 6156231-6 (Version None)
Quarter: 2009Q2

REPORT INFORMATION
  Report Type: 
  Country: None (occurrence: None)
  Receive Date: 20090415
  Receipt Date: 20090331
  Transmission Date: 20091009
  Serious: Yes (Other)
  Sender: FDA-Public Use
  Company Number: HK-GENENTECH-281053

PATIENT

DRUGS (2)
  1. AVASTIN [Suspect]
     Indication: MYOPIA
     Dosage: 1.25 MG, UNK
     Route: 031
  2. LEVOFLOXACIN [Concomitant]
     Indication: DRUG USE FOR UNKNOWN INDICATION

REACTIONS (1)
  - RETINAL SCAR [None]
